FAERS Safety Report 21408992 (Version 1)
Quarter: 2022Q4

REPORT INFORMATION
  Report Type: Spontaneous
  Country: US (occurrence: US)
  Receive Date: 20221004
  Receipt Date: 20221004
  Transmission Date: 20230113
  Serious: No
  Sender: FDA-Public Use
  Company Number: US-SA-SAC20220928001234

PATIENT
  Age: 50 Year
  Sex: Female

DRUGS (2)
  1. DUPIXENT [Suspect]
     Active Substance: DUPILUMAB
     Indication: Dermatitis atopic
     Dosage: 300MG ,OTHER
     Route: 058
     Dates: start: 202110
  2. DUPIXENT [Suspect]
     Active Substance: DUPILUMAB
     Indication: Asthma
     Dosage: 300MG ,OTHER
     Route: 058
     Dates: start: 202209

REACTIONS (4)
  - Rhinorrhoea [Unknown]
  - Impetigo [Unknown]
  - Rash [Unknown]
  - COVID-19 [Unknown]

NARRATIVE: CASE EVENT DATE: 20220201
